FAERS Safety Report 15121501 (Version 2)
Quarter: 2018Q3

REPORT INFORMATION
  Report Type: Spontaneous
  Country: AU (occurrence: AU)
  Receive Date: 20180709
  Receipt Date: 20180720
  Transmission Date: 20181010
  Serious: Yes (Other)
  Sender: FDA-Public Use
  Company Number: AU-BAUSCH-BL-2018-018753

PATIENT
  Sex: Male

DRUGS (3)
  1. LUCENTIS [Suspect]
     Active Substance: RANIBIZUMAB
     Indication: PRODUCT USED FOR UNKNOWN INDICATION
     Route: 065
  2. AVASTIN [Concomitant]
     Active Substance: BEVACIZUMAB
     Indication: PRODUCT USED FOR UNKNOWN INDICATION
  3. VISUDYNE [Suspect]
     Active Substance: VERTEPORFIN
     Indication: POLYPOIDAL CHOROIDAL VASCULOPATHY
     Dosage: 6MG/2M OVER 10 MIN, ONE TIME DOSE
     Route: 042
     Dates: start: 20180621

REACTIONS (1)
  - Drug ineffective [Unknown]
